FAERS Safety Report 16818139 (Version 1)
Quarter: 2019Q3

REPORT INFORMATION
  Report Type: Spontaneous
  Country: US (occurrence: US)
  Receive Date: 20190917
  Receipt Date: 20190917
  Transmission Date: 20191005
  Serious: No
  Sender: FDA-Public Use
  Company Number: US-PERRIGO-19US003330

PATIENT
  Age: 63 Year
  Sex: Male
  Weight: 88.89 kg

DRUGS (3)
  1. TESTOSTERONE. [Suspect]
     Active Substance: TESTOSTERONE
     Indication: HYPOGONADISM
     Dosage: 101.25 MG, QD
     Route: 061
     Dates: start: 20190104, end: 20190311
  2. TESTOSTERONE. [Suspect]
     Active Substance: TESTOSTERONE
     Dosage: 81 MG, QD
     Route: 061
     Dates: start: 20190312
  3. SYNTHROID [Concomitant]
     Active Substance: LEVOTHYROXINE SODIUM
     Indication: HYPOTHYROIDISM
     Dosage: 50 MCG
     Route: 065
     Dates: start: 2018

REACTIONS (5)
  - Blood testosterone increased [Not Recovered/Not Resolved]
  - Product administered at inappropriate site [Recovered/Resolved]
  - Liver function test increased [Not Recovered/Not Resolved]
  - Urinary retention [Not Recovered/Not Resolved]
  - Incorrect dose administered [Recovered/Resolved]

NARRATIVE: CASE EVENT DATE: 201901
